FAERS Safety Report 9833769 (Version 1)
Quarter: 2014Q1

REPORT INFORMATION
  Report Type: Spontaneous
  Country: US (occurrence: US)
  Receive Date: 20140122
  Receipt Date: 20140122
  Transmission Date: 20141002
  Serious: No
  Sender: FDA-Public Use
  Company Number: US-BIOGENIDEC-2014BI004575

PATIENT
  Sex: Female

DRUGS (11)
  1. TECFIDERA [Suspect]
     Indication: PRODUCT USED FOR UNKNOWN INDICATION
     Route: 048
     Dates: start: 20131015, end: 20131021
  2. TECFIDERA [Suspect]
     Indication: PRODUCT USED FOR UNKNOWN INDICATION
     Route: 048
     Dates: start: 20131022
  3. TECFIDERA [Suspect]
     Indication: PRODUCT USED FOR UNKNOWN INDICATION
     Route: 048
     Dates: start: 20131022
  4. LISINOPRIL [Concomitant]
  5. NEURONTIN [Concomitant]
  6. SYNTHROID [Concomitant]
  7. TYLENOL [Concomitant]
  8. CYMBALTA [Concomitant]
  9. VITAMIN D 3 [Concomitant]
  10. VITAMIN C [Concomitant]
  11. FIBERCON [Concomitant]

REACTIONS (3)
  - Alopecia [Unknown]
  - Constipation [Unknown]
  - Pruritus [Unknown]
